FAERS Safety Report 15578134 (Version 1)
Quarter: 2018Q4

REPORT INFORMATION
  Report Type: Spontaneous
  Country: JP (occurrence: JP)
  Receive Date: 20181102
  Receipt Date: 20181102
  Transmission Date: 20190205
  Serious: Yes (Hospitalization)
  Sender: FDA-Public Use
  Company Number: JP-ELI_LILLY_AND_COMPANY-JP201805012426AA

PATIENT
  Age: 85 Year
  Sex: Female
  Weight: 43 kg

DRUGS (7)
  1. METHYCOBAL [Concomitant]
     Active Substance: METHYLCOBALAMIN
     Dosage: 1500 UG, UNK
  2. MICARDIS [Concomitant]
     Active Substance: TELMISARTAN
     Dosage: 20 MG, UNK
  3. ACINON                             /00867001/ [Concomitant]
     Active Substance: NIZATIDINE
     Dosage: 300 MG, UNK
  4. MEVALOTIN [Concomitant]
     Active Substance: PRAVASTATIN SODIUM
     Dosage: 10 MG, UNK
  5. FORTEO [Suspect]
     Active Substance: TERIPARATIDE
     Indication: OSTEOPOROSIS
     Dosage: UNK
     Route: 058
     Dates: start: 20180328, end: 20180425
  6. MOHRUS [Concomitant]
     Active Substance: KETOPROFEN
     Dosage: 20 MG, UNK
  7. MAINTATE [Concomitant]
     Active Substance: BISOPROLOL FUMARATE
     Dosage: 2.5 MG, UNK

REACTIONS (3)
  - Oedema peripheral [Recovering/Resolving]
  - Blood pressure increased [Unknown]
  - Weight increased [Unknown]

NARRATIVE: CASE EVENT DATE: 201804
